FAERS Safety Report 9822761 (Version 1)
Quarter: 2014Q1

REPORT INFORMATION
  Report Type: Spontaneous
  Country: US (occurrence: US)
  Receive Date: 20140116
  Receipt Date: 20140116
  Transmission Date: 20141002
  Serious: Yes (Death)
  Sender: FDA-Public Use
  Company Number: US-TMC-CABO-14003873

PATIENT
  Age: 58 Year
  Sex: Male

DRUGS (11)
  1. COMETRIQ [Suspect]
     Indication: RENAL CANCER
     Dosage: 140 MG, QD
     Route: 048
     Dates: start: 20130831, end: 20131206
  2. HYDROCODONE [Concomitant]
  3. OMEPRAZOLE [Concomitant]
  4. GABAPENTIN [Concomitant]
  5. PREDNISONE [Concomitant]
  6. METAMUCIL [Concomitant]
  7. CETIRIZINE [Concomitant]
  8. MULTIVITAMIN [Concomitant]
  9. FISH OIL [Concomitant]
  10. SOURSOP [Concomitant]
  11. WHEAT GERM [Concomitant]

REACTIONS (2)
  - Death [Fatal]
  - Off label use [Unknown]
